FAERS Safety Report 12374472 (Version 1)
Quarter: 2016Q2

REPORT INFORMATION
  Report Type: Spontaneous
  Country: US (occurrence: US)
  Receive Date: 20160517
  Receipt Date: 20160517
  Transmission Date: 20160815
  Serious: No
  Sender: FDA-Public Use
  Company Number: US-TORRENT-00000944

PATIENT
  Sex: Female
  Weight: 92 kg

DRUGS (10)
  1. XANAX [Concomitant]
     Active Substance: ALPRAZOLAM
     Dosage: ONCE DAILY BEDTIME
     Route: 048
  2. CALCIUM [Concomitant]
     Active Substance: CALCIUM
  3. FLONASE [Concomitant]
     Active Substance: FLUTICASONE PROPIONATE
     Dosage: INHALED
  4. SINGULAIR [Concomitant]
     Active Substance: MONTELUKAST SODIUM
     Dosage: ONE A DAY AT NIGHT
     Route: 048
  5. MUSINEX [Concomitant]
     Route: 048
  6. ZYRTEC [Concomitant]
     Active Substance: CETIRIZINE HYDROCHLORIDE
     Route: 048
  7. VITAMIN D3 [Concomitant]
     Active Substance: CHOLECALCIFEROL
  8. COUMADIN [Concomitant]
     Active Substance: WARFARIN SODIUM
     Dosage: 5MG ONE DAY AND 6MG NEXT DAY REPEAT
  9. SPIRIVA [Concomitant]
     Active Substance: TIOTROPIUM BROMIDE MONOHYDRATE
  10. CITALOPRAM HYDROBROMIDE- CITALOPRAM HYDROBROMIDE TABLET [Suspect]
     Active Substance: CITALOPRAM HYDROBROMIDE
     Indication: ANXIETY
     Dosage: ONCE A DAY AT BEDTIME
     Dates: start: 20150423

REACTIONS (5)
  - Asthenia [Not Recovered/Not Resolved]
  - Palpitations [Not Recovered/Not Resolved]
  - Phobia [Not Recovered/Not Resolved]
  - Amnesia [Not Recovered/Not Resolved]
  - Discomfort [Not Recovered/Not Resolved]
